FAERS Safety Report 4284311-9 (Version None)
Quarter: 2004Q1

REPORT INFORMATION
  Report Type: 
  Country: None (occurrence: None)
  Receive Date: 20040130
  Receipt Date: 20040108
  Transmission Date: 20041129
  Serious: Yes (Hospitalization)
  Sender: FDA-Public Use
  Company Number: USA031255042

PATIENT
  Age: 15 Year
  Sex: Female
  Weight: 58 kg

DRUGS (2)
  1. STRATTERA [Suspect]
     Indication: ATTENTION DEFICIT/HYPERACTIVITY DISORDER
     Dosage: 400 MG/DAY
  2. ADDERALL [Concomitant]

REACTIONS (8)
  - DIPLOPIA [None]
  - DYSKINESIA [None]
  - DYSTONIA [None]
  - HEADACHE [None]
  - MEDICATION ERROR [None]
  - MUSCLE TWITCHING [None]
  - MYDRIASIS [None]
  - MYOCLONUS [None]
